FAERS Safety Report 5273766-9 (Version None)
Quarter: 2007Q1

REPORT INFORMATION
  Report Type: 
  Country: None (occurrence: None)
  Receive Date: 20070321
  Receipt Date: 20070321
  Transmission Date: 20070707
  Serious: Yes (Hospitalization)
  Sender: FDA-Public Use
  Company Number: None

PATIENT
  Age: 41 Year
  Sex: Male
  Weight: 87 kg

DRUGS (2)
  1. DAPTOMYCIN 500 MG CUBIST PHARMACEUTICAL INC. [Suspect]
     Indication: STAPHYLOCOCCAL ABSCESS
     Dosage: DAPTOMYCIN 500 MG IV
     Route: 042
     Dates: start: 20070228, end: 20070312
  2. DAPTOMYCIN 500 MG CUBIST PHARMACEUTICAL INC. [Suspect]
     Indication: SUBCUTANEOUS ABSCESS
     Dosage: DAPTOMYCIN 500 MG IV
     Route: 042
     Dates: start: 20070228, end: 20070312

REACTIONS (2)
  - BLOOD CREATINE PHOSPHOKINASE INCREASED [None]
  - RENAL IMPAIRMENT [None]
